FAERS Safety Report 9232118 (Version 1)
Quarter: 2013Q2

REPORT INFORMATION
  Report Type: Other
  Country: DE (occurrence: DE)
  Receive Date: 20130415
  Receipt Date: 20130415
  Transmission Date: 20140414
  Serious: Yes (Congenital Anomaly, Other)
  Sender: FDA-Public Use
  Company Number: DE-NICOBRDEVP-2013-06545

PATIENT
  Sex: Male

DRUGS (3)
  1. FLUOXETINE HYDROCHLORIDE (UNKNOWN) [Suspect]
     Indication: DEPRESSION
     Dosage: 20 MG, DAILY
     Route: 064
     Dates: start: 20110830, end: 20120522
  2. LAMOTRIGINE (UNKNOWN) [Suspect]
     Indication: DEPRESSION
     Dosage: 200 MG, DAILY
     Route: 064
     Dates: start: 20110830, end: 20120522
  3. CYMBALTA [Suspect]
     Indication: DEPRESSION
     Dosage: 60 MG, DAILY
     Route: 064
     Dates: start: 20110830, end: 20120522

REACTIONS (4)
  - Atrial septal defect [Not Recovered/Not Resolved]
  - Neonatal respiratory distress syndrome [Recovered/Resolved]
  - Agitation neonatal [Recovered/Resolved]
  - Foetal exposure during pregnancy [Not Recovered/Not Resolved]
